FAERS Safety Report 23774917 (Version 1)
Quarter: 2024Q2

REPORT INFORMATION
  Report Type: Spontaneous
  Country: AR (occurrence: AR)
  Receive Date: 20240423
  Receipt Date: 20240423
  Transmission Date: 20240715
  Serious: Yes (Hospitalization, Other)
  Sender: FDA-Public Use
  Company Number: AR-002147023-NVSC2024AR081811

PATIENT
  Age: 47 Year
  Sex: Female
  Weight: 52 kg

DRUGS (1)
  1. LETROZOLE [Suspect]
     Active Substance: LETROZOLE
     Indication: Breast cancer
     Dosage: 2.5 MG
     Route: 048

REACTIONS (3)
  - Cholangitis [Not Recovered/Not Resolved]
  - Pyrexia [Not Recovered/Not Resolved]
  - Blood bilirubin increased [Not Recovered/Not Resolved]

NARRATIVE: CASE EVENT DATE: 20240407
